FAERS Safety Report 18841580 (Version 1)
Quarter: 2021Q1

REPORT INFORMATION
  Report Type: Other
  Country: US (occurrence: US)
  Receive Date: 20210203
  Receipt Date: 20210203
  Transmission Date: 20210419
  Serious: Yes (Death)
  Sender: FDA-Public Use
  Company Number: US-ROCHE-2761650

PATIENT
  Age: 65 Year
  Sex: Male
  Weight: 170.25 kg

DRUGS (3)
  1. ESBRIET [Suspect]
     Active Substance: PIRFENIDONE
     Indication: IDIOPATHIC PULMONARY FIBROSIS
     Route: 048
     Dates: start: 20170612, end: 202012
  2. TRAZODONE [Concomitant]
     Active Substance: TRAZODONE HYDROCHLORIDE
     Route: 048
  3. OXYGEN. [Concomitant]
     Active Substance: OXYGEN

REACTIONS (4)
  - Headache [Recovered/Resolved]
  - Dyspnoea [Unknown]
  - Death [Fatal]
  - Wheezing [Unknown]

NARRATIVE: CASE EVENT DATE: 202012
